FAERS Safety Report 4613178-1 (Version None)
Quarter: 2005Q1

REPORT INFORMATION
  Report Type: 
  Country: None (occurrence: None)
  Receive Date: 20050316
  Receipt Date: 20050307
  Transmission Date: 20050727
  Serious: Yes (Other)
  Sender: FDA-Public Use
  Company Number: 2005042101

PATIENT
  Age: 52 Year
  Sex: Female
  Weight: 108.4097 kg

DRUGS (4)
  1. NEURONTIN [Suspect]
     Indication: CONVULSION
     Dosage: 600 MG (100 MG, 6 IN 1 D)
  2. ALL OTHER THERAPEUTIC PRODUCTS (ALL OTHER THERAPEUTIC PRODUCTS) [Concomitant]
  3. PRIMIDONE [Concomitant]
  4. LAMOTRIGINE [Concomitant]

REACTIONS (3)
  - BRAIN OPERATION [None]
  - CONVULSION [None]
  - ILL-DEFINED DISORDER [None]
